FAERS Safety Report 4620057-2 (Version None)
Quarter: 2005Q1

REPORT INFORMATION
  Report Type: 
  Country: None (occurrence: None)
  Receive Date: 20050324
  Receipt Date: 20050218
  Transmission Date: 20050727
  Serious: Yes (Other)
  Sender: FDA-Public Use
  Company Number: 2005040650

PATIENT
  Age: 36 Year
  Sex: Male

DRUGS (4)
  1. LYRICA [Suspect]
     Indication: EPILEPSY
     Dosage: 525 MG (1 IN 1 D), ORAL
     Route: 048
     Dates: start: 20041116
  2. PHENYTOIN [Suspect]
     Indication: EPILEPSY
     Dosage: 50 MG (50 MG, 1 IN 1 D)
  3. CARBAMAZEPINE [Suspect]
     Indication: EPILEPSY
     Dosage: 1200 MG (400 MG, 3 IN 1 D)
  4. TEMOZOLOMIDE (TEMOZOLOMIDE) [Suspect]
     Indication: CHEMOTHERAPY
     Dates: start: 20050201

REACTIONS (2)
  - CONVULSION [None]
  - DIZZINESS [None]
